FAERS Safety Report 7221985-4 (Version None)
Quarter: 2011Q1

REPORT INFORMATION
  Report Type: 
  Country: None (occurrence: None)
  Receive Date: 20110112
  Receipt Date: 20110103
  Transmission Date: 20110831
  Serious: Yes (Hospitalization)
  Sender: FDA-Public Use
  Company Number: US-SANOFI-AVENTIS-2011SA000925

PATIENT
  Age: 48 Year
  Sex: Female

DRUGS (5)
  1. LASIX [Suspect]
     Route: 065
     Dates: start: 20100201
  2. AVANDAMET [Suspect]
     Indication: TYPE 2 DIABETES MELLITUS
     Route: 048
     Dates: start: 20080401, end: 20090901
  3. MAGNESIUM/POTASSIUM [Concomitant]
  4. LANOXIN [Suspect]
     Indication: ATRIAL FIBRILLATION
     Route: 048
     Dates: start: 20100201
  5. DILTIAZEM [Suspect]
     Route: 065

REACTIONS (9)
  - NAUSEA [None]
  - TREATMENT NONCOMPLIANCE [None]
  - WEIGHT INCREASED [None]
  - ATRIAL FIBRILLATION [None]
  - DIARRHOEA [None]
  - FAECES HARD [None]
  - DECREASED APPETITE [None]
  - WEIGHT DECREASED [None]
  - ELECTROLYTE IMBALANCE [None]
